FAERS Safety Report 17489808 (Version 1)
Quarter: 2020Q1

REPORT INFORMATION
  Report Type: Spontaneous
  Country: US (occurrence: US)
  Receive Date: 20200303
  Receipt Date: 20200303
  Transmission Date: 20200409
  Serious: No
  Sender: FDA-Public Use
  Company Number: US-AKORN PHARMACEUTICALS-2019AKN01326

PATIENT
  Age: 18 Year
  Sex: Male
  Weight: 78.01 kg

DRUGS (1)
  1. MYORISAN [Suspect]
     Active Substance: ISOTRETINOIN
     Indication: ACNE
     Dosage: 40 MG, 2X/DAY
     Route: 048
     Dates: start: 20190131, end: 20190612

REACTIONS (7)
  - Dermatitis papillaris capillitii [Not Recovered/Not Resolved]
  - Drug ineffective [Recovered/Resolved]
  - Dry skin [Not Recovered/Not Resolved]
  - Cheilitis [Not Recovered/Not Resolved]
  - Acne [Not Recovered/Not Resolved]
  - Treatment noncompliance [Recovered/Resolved]
  - Sunburn [Recovered/Resolved]

NARRATIVE: CASE EVENT DATE: 2019
